FAERS Safety Report 20001754 (Version 1)
Quarter: 2021Q4

REPORT INFORMATION
  Report Type: Report from Study
  Country: None (occurrence: FR)
  Receive Date: 20211027
  Receipt Date: 20211027
  Transmission Date: 20220303
  Serious: Yes (Other)
  Sender: FDA-Public Use
  Company Number: FR-ABBVIE-20K-056-3663794-00

PATIENT
  Age: 76 Year
  Sex: Male

DRUGS (25)
  1. VENETOCLAX [Suspect]
     Active Substance: VENETOCLAX
     Indication: Chronic lymphocytic leukaemia
     Route: 048
     Dates: start: 20200706, end: 20200712
  2. VENETOCLAX [Suspect]
     Active Substance: VENETOCLAX
     Route: 048
     Dates: start: 20200713, end: 20200719
  3. VENETOCLAX [Suspect]
     Active Substance: VENETOCLAX
     Route: 048
     Dates: start: 20200720, end: 20200726
  4. VENETOCLAX [Suspect]
     Active Substance: VENETOCLAX
     Route: 048
     Dates: start: 20200727, end: 20200802
  5. VENETOCLAX [Suspect]
     Active Substance: VENETOCLAX
     Route: 048
     Dates: start: 20200803
  6. VALACYCLOVIR HYDROCHLORIDE [Concomitant]
     Active Substance: VALACYCLOVIR HYDROCHLORIDE
     Indication: Infection prophylaxis
     Dates: start: 20200624
  7. ROXITHROMYCIN [Concomitant]
     Active Substance: ROXITHROMYCIN
     Indication: Infection prophylaxis
     Dates: start: 20200624
  8. ALLOPURINOL [Concomitant]
     Active Substance: ALLOPURINOL
     Indication: Metabolic disorder prophylaxis
     Dates: start: 20200624
  9. ACETAMINOPHEN [Concomitant]
     Active Substance: ACETAMINOPHEN
     Indication: Pain
     Dates: start: 20200811
  10. DEXCHLORPHENIRAMINE [Concomitant]
     Active Substance: DEXCHLORPHENIRAMINE
     Indication: Allergy prophylaxis
     Dates: start: 20200811
  11. METHYLPREDNISOLONE [Concomitant]
     Active Substance: METHYLPREDNISOLONE
     Indication: Allergy prophylaxis
     Dates: start: 20200811
  12. RITUXIMAB [Concomitant]
     Active Substance: RITUXIMAB
     Indication: Chronic lymphocytic leukaemia
     Dates: start: 20200811
  13. SODIUM CHLORIDE [Concomitant]
     Active Substance: SODIUM CHLORIDE
     Indication: Fluid replacement
     Dates: start: 20200811
  14. FASTURTEC [Concomitant]
     Active Substance: RASBURICASE
     Indication: Metabolic disorder prophylaxis
     Dates: start: 20200810, end: 20200811
  15. LOVENOX [Concomitant]
     Active Substance: ENOXAPARIN SODIUM
     Indication: Thrombosis prophylaxis
     Dates: start: 20200810
  16. AMLODIPINE [Concomitant]
     Active Substance: AMLODIPINE BESYLATE
     Indication: Hypertension
     Dates: start: 1999
  17. CANDESARTAN CILEXETIL\HYDROCHLOROTHIAZIDE [Concomitant]
     Active Substance: CANDESARTAN CILEXETIL\HYDROCHLOROTHIAZIDE
     Indication: Hypertension
     Dates: start: 1999
  18. TAMSULOSIN HYDROCHLORIDE [Concomitant]
     Active Substance: TAMSULOSIN HYDROCHLORIDE
     Indication: Hypertension
     Dates: start: 1999
  19. SOTALOL [Concomitant]
     Active Substance: SOTALOL
     Indication: Hypertension
     Dates: start: 1999
  20. TEMESTA [Concomitant]
     Indication: Depression
     Dates: start: 1999
  21. TRAMADOL [Concomitant]
     Active Substance: TRAMADOL
     Indication: Pain
     Dates: start: 20200810, end: 20200813
  22. PENTACARINAT [Concomitant]
     Active Substance: PENTAMIDINE ISETHIONATE
     Indication: Infection prophylaxis
     Dates: start: 20200810
  23. TEGELINE [Concomitant]
     Active Substance: HUMAN IMMUNOGLOBULIN G
     Indication: Immunodeficiency
     Dates: start: 20201020
  24. COVID-19 VACCINE [Concomitant]
     Indication: COVID-19 immunisation
     Dates: start: 202101, end: 202101
  25. COVID-19 VACCINE [Concomitant]
     Dates: start: 20210914, end: 20210914

REACTIONS (9)
  - Abdominal pain [Recovered/Resolved]
  - Unevaluable event [Recovered/Resolved]
  - Aortic bypass [Recovered/Resolved]
  - Acute kidney injury [Recovered/Resolved]
  - Pyelonephritis [Recovered/Resolved]
  - C-reactive protein increased [Recovered/Resolved]
  - Back pain [Recovered/Resolved]
  - Musculoskeletal pain [Not Recovered/Not Resolved]
  - Diarrhoea [Recovered/Resolved]

NARRATIVE: CASE EVENT DATE: 20200824
